FAERS Safety Report 22136951 (Version 4)
Quarter: 2023Q2

REPORT INFORMATION
  Report Type: Spontaneous
  Country: US (occurrence: US)
  Receive Date: 20230324
  Receipt Date: 20230410
  Transmission Date: 20230722
  Serious: No
  Sender: FDA-Public Use
  Company Number: US-KYOWAKIRIN-2023BKK004311

PATIENT

DRUGS (8)
  1. CRYSVITA [Suspect]
     Active Substance: BUROSUMAB-TWZA
     Indication: Hereditary hypophosphataemic rickets
     Dosage: UNK
     Route: 065
     Dates: start: 201902
  2. CRYSVITA [Suspect]
     Active Substance: BUROSUMAB-TWZA
     Dosage: 30 MG (50 MG DOSE SPLIT ACROSS TWO INJECTIONS)
     Route: 065
     Dates: start: 20230328
  3. CRYSVITA [Suspect]
     Active Substance: BUROSUMAB-TWZA
     Dosage: 50 MG, 1X/2 WEEKS (50 MG ALTERNATING WITH 40 MG)
     Route: 065
  4. CRYSVITA [Suspect]
     Active Substance: BUROSUMAB-TWZA
     Dosage: 40 MG, 1X/2 WEEKS, (50 MG ALTERNATING WITH 40 MG)
     Route: 065
  5. CRYSVITA [Suspect]
     Active Substance: BUROSUMAB-TWZA
     Indication: Hereditary hypophosphataemic rickets
     Dosage: UNK
     Route: 065
     Dates: start: 201902
  6. CRYSVITA [Suspect]
     Active Substance: BUROSUMAB-TWZA
     Dosage: 20 MG, 1X/2 WEEKS,  (50 MG DOSE SPLIT ACROSS TWO INJECTIONS)
     Route: 065
     Dates: start: 20230328
  7. CRYSVITA [Suspect]
     Active Substance: BUROSUMAB-TWZA
     Dosage: 50 MG, 1X/2 WEEKS (50 MG ALTERNATING WITH 40 MG)
     Route: 065
  8. CRYSVITA [Suspect]
     Active Substance: BUROSUMAB-TWZA
     Dosage: 40 MG, 1X/2 WEEKS, (50 MG ALTERNATING WITH 40 MG)
     Route: 065

REACTIONS (3)
  - Constipation [Recovered/Resolved]
  - Spinal pain [Not Recovered/Not Resolved]
  - Constipation [Recovered/Resolved]

NARRATIVE: CASE EVENT DATE: 20200701
